FAERS Safety Report 7315461 (Version 2)
Quarter: 2013Q3

REPORT INFORMATION
  Report Type: Report from Study
  Country: DE (occurrence: DE)
  Receive Date: 20100311
  Receipt Date: 20130703
  Transmission Date: 20140515
  Serious: Yes (Death)
  Sender: FDA-Public Use
  Company Number: DE-ROCHE-689535

PATIENT
  Age: 46 Year
  Sex: Male
  Weight: 92 kg

DRUGS (4)
  1. PEG-INTERFERON ALFA 2A [Suspect]
     Indication: CHRONIC HEPATITIS C
     Route: 058
     Dates: start: 20090902, end: 20100221
  2. RIBAVIRIN [Suspect]
     Indication: CHRONIC HEPATITIS C
     Route: 048
     Dates: start: 20090902, end: 20100221
  3. CITALOPRAM [Concomitant]
     Indication: DEPRESSION
     Route: 048
     Dates: start: 20090902, end: 20100221
  4. IBUPROFEN [Concomitant]
     Indication: PAIN
     Route: 065

REACTIONS (1)
  - Sudden cardiac death [Fatal]
